FAERS Safety Report 4571873-7 (Version None)
Quarter: 2005Q1

REPORT INFORMATION
  Report Type: 
  Country: None (occurrence: None)
  Receive Date: 20050207
  Receipt Date: 20050131
  Transmission Date: 20050727
  Serious: Yes (Hospitalization)
  Sender: FDA-Public Use
  Company Number: PHBS2005JP01827

PATIENT
  Age: 75 Year
  Sex: Male

DRUGS (8)
  1. DIOVAN [Suspect]
     Indication: HYPERTENSION
     Dosage: 80 MG/DAY
     Route: 048
     Dates: start: 20041101, end: 20050121
  2. ASPIRIN [Suspect]
     Route: 048
  3. ARTIST [Suspect]
     Route: 048
  4. LASIX [Suspect]
  5. ZYLORIC [Suspect]
     Route: 048
  6. WARFARIN SODIUM [Suspect]
     Route: 048
  7. GASTROM [Suspect]
  8. INNOLET N [Suspect]

REACTIONS (4)
  - EYELID OEDEMA [None]
  - HEPATIC FUNCTION ABNORMAL [None]
  - PLATELET COUNT DECREASED [None]
  - RASH GENERALISED [None]
